FAERS Safety Report 6558422-9 (Version None)
Quarter: 2010Q1

REPORT INFORMATION
  Report Type: 
  Country: None (occurrence: None)
  Receive Date: 20100128
  Receipt Date: 20100128
  Transmission Date: 20100710
  Serious: Yes (Death, Life-Threatening, Hospitalization)
  Sender: FDA-Public Use
  Company Number: None

PATIENT
  Age: 66 Year
  Sex: Female
  Weight: 69.6 kg

DRUGS (1)
  1. ENOXAPARIN SODIUM [Suspect]
     Indication: THROMBOSIS PROPHYLAXIS
     Dosage: 40 MG DAILY SQ, 4 DOSES
     Route: 058
     Dates: start: 20100101, end: 20100104

REACTIONS (3)
  - ABDOMINAL PAIN [None]
  - HAEMATOMA [None]
  - SKIN DISCOLOURATION [None]
